FAERS Safety Report 4581997-6 (Version None)
Quarter: 2005Q1

REPORT INFORMATION
  Report Type: 
  Country: None (occurrence: None)
  Receive Date: 20050119
  Receipt Date: 20040913
  Transmission Date: 20050727
  Serious: Yes (Other)
  Sender: FDA-Public Use
  Company Number: US-JNJFOC-20040808327

PATIENT
  Age: 69 Year
  Sex: Female
  Weight: 68.4932 kg

DRUGS (7)
  1. DOXIL [Suspect]
     Indication: OVARIAN CANCER
     Dosage: 90 MG, 1 IN 2 WEEK, INTRAVENOUS
     Route: 042
     Dates: start: 20040712, end: 20040802
  2. DOXIL [Suspect]
     Indication: OVARIAN CANCER
     Dosage: 70 MG, 1 IN 2 WEEK, INTRAVENOUS
     Route: 042
     Dates: start: 20040801
  3. ATIVAN [Concomitant]
  4. DARVOCET-N 100 [Concomitant]
  5. RESTORIL [Concomitant]
  6. VITAMIN (VITAMINS NOS) [Concomitant]
  7. IRON (IRON) [Concomitant]

REACTIONS (2)
  - MUCOSAL INFLAMMATION [None]
  - PALMAR-PLANTAR ERYTHRODYSAESTHESIA SYNDROME [None]
